FAERS Safety Report 19441141 (Version 1)
Quarter: 2021Q2

REPORT INFORMATION
  Report Type: Spontaneous
  Country: FR (occurrence: FR)
  Receive Date: 20210621
  Receipt Date: 20210621
  Transmission Date: 20210717
  Serious: Yes (Hospitalization)
  Sender: FDA-Public Use
  Company Number: FR-TEVA-2021-FR-1923318

PATIENT
  Age: 83 Year
  Sex: Female

DRUGS (2)
  1. CLOPIDOGREL (BESILATE DE) [Suspect]
     Active Substance: CLOPIDOGREL BESILATE
     Indication: STENT PATENCY MAINTENANCE
     Dosage: 75 MG
     Route: 048
     Dates: start: 20210505
  2. ELIQUIS [Suspect]
     Active Substance: APIXABAN
     Indication: STENT PATENCY MAINTENANCE
     Dosage: 5 MG
     Route: 048
     Dates: start: 20210505, end: 20210515

REACTIONS (1)
  - Post procedural haematoma [Recovered/Resolved]

NARRATIVE: CASE EVENT DATE: 20210515
